FAERS Safety Report 14256082 (Version 4)
Quarter: 2018Q1

REPORT INFORMATION
  Report Type: Report from Study
  Country: US (occurrence: US)
  Receive Date: 20171206
  Receipt Date: 20180329
  Transmission Date: 20180508
  Serious: Yes (Hospitalization, Other)
  Sender: FDA-Public Use
  Company Number: US-GILEAD-2017-0308553

PATIENT
  Age: 44 Year
  Sex: Female
  Weight: 92.52 kg

DRUGS (9)
  1. PROVENTIL [Concomitant]
     Active Substance: ALBUTEROL
  2. BREO ELLIPTA [Concomitant]
     Active Substance: FLUTICASONE FUROATE\VILANTEROL TRIFENATATE
  3. AMBRISENTAN [Suspect]
     Active Substance: AMBRISENTAN
     Indication: PULMONARY HYPERTENSION
     Dosage: 5 MG, QD
     Route: 048
     Dates: start: 20171107
  4. NEURONTIN [Concomitant]
     Active Substance: GABAPENTIN
  5. AMBRISENTAN [Suspect]
     Active Substance: AMBRISENTAN
     Indication: INTERSTITIAL LUNG DISEASE
     Dosage: 10 MG, UNK
     Route: 048
     Dates: start: 20171010
  6. CORTEF [Concomitant]
     Active Substance: HYDROCORTISONE
  7. ALDACTONE [Concomitant]
     Active Substance: SPIRONOLACTONE
  8. AMBRISENTAN [Suspect]
     Active Substance: AMBRISENTAN
     Indication: AUTOIMMUNE DISORDER
  9. LASIX [Concomitant]
     Active Substance: FUROSEMIDE

REACTIONS (8)
  - Intentional dose omission [Unknown]
  - Medical induction of coma [Not Recovered/Not Resolved]
  - Endotracheal intubation [Unknown]
  - Mechanical ventilation [Unknown]
  - Pneumonia [Recovered/Resolved]
  - Respiratory failure [Not Recovered/Not Resolved]
  - Interstitial lung disease [Not Recovered/Not Resolved]
  - Lung disorder [Unknown]

NARRATIVE: CASE EVENT DATE: 201711
